FAERS Safety Report 23956186 (Version 2)
Quarter: 2024Q2

REPORT INFORMATION
  Report Type: Report from Study
  Country: ES (occurrence: ES)
  Receive Date: 20240610
  Receipt Date: 20240630
  Transmission Date: 20240715
  Serious: Yes (Other)
  Sender: FDA-Public Use
  Company Number: ES-JNJFOC-20240531252

PATIENT
  Age: 51 Year
  Sex: Female

DRUGS (4)
  1. SPRAVATO [Suspect]
     Active Substance: ESKETAMINE
     Indication: Depression
     Dates: start: 20240125, end: 20240125
  2. SPRAVATO [Suspect]
     Active Substance: ESKETAMINE
     Dosage: PATIENT HAD DOSES ON 01-FEB-2024, 06-FEB-2024, 08-FEB-2024, 12-FEB-2024, 15-FEB-2024, 20-FEB-2024, 2
     Dates: start: 20240130, end: 20240312
  3. SPRAVATO [Suspect]
     Active Substance: ESKETAMINE
     Dosage: PATIENT HAD DOSES ON 19-MAR-2024, 21-MAR-2024, 26-MAR-2024, 02-APR-2024, 04-APR-2024, 09-APR-2024, 1
     Dates: start: 20240314, end: 20240507
  4. CLONAZEPAM [Suspect]
     Active Substance: CLONAZEPAM
     Indication: Suicide attempt
     Route: 065

REACTIONS (5)
  - Suicide attempt [Recovered/Resolved]
  - Intentional overdose [Recovered/Resolved]
  - Dissociation [Recovered/Resolved]
  - Nausea [Recovered/Resolved]
  - Vomiting [Recovered/Resolved]

NARRATIVE: CASE EVENT DATE: 20240416
